FAERS Safety Report 6692015-8 (Version None)
Quarter: 2010Q2

REPORT INFORMATION
  Report Type: 
  Country: None (occurrence: None)
  Receive Date: 20100422
  Receipt Date: 20100413
  Transmission Date: 20101027
  Serious: Yes (Hospitalization)
  Sender: FDA-Public Use
  Company Number: US-ELI_LILLY_AND_COMPANY-US201003008676

PATIENT
  Sex: Male
  Weight: 90.249 kg

DRUGS (5)
  1. OLANZAPINE [Suspect]
     Indication: BIPOLAR I DISORDER
     Dosage: 7.5 MG, DAILY (1/D)
     Route: 048
     Dates: start: 20100315, end: 20100404
  2. OLANZAPINE [Suspect]
     Dosage: 10 MG, UNK
     Dates: start: 20100405, end: 20100407
  3. OLANZAPINE [Suspect]
     Dosage: 12.5 D/F, UNK
     Dates: start: 20100408
  4. ADVAIR DISKUS 100/50 [Concomitant]
     Indication: ASTHMA
     Dates: start: 20090801
  5. SINGULAIR [Concomitant]
     Indication: HYPERSENSITIVITY
     Dates: start: 20090501

REACTIONS (1)
  - IRRITABILITY [None]
